FAERS Safety Report 9816769 (Version 1)
Quarter: 2014Q1

REPORT INFORMATION
  Report Type: Spontaneous
  Country: FR (occurrence: FR)
  Receive Date: 20140114
  Receipt Date: 20140114
  Transmission Date: 20141002
  Serious: Yes (Other)
  Sender: FDA-Public Use
  Company Number: PHHY2014FR001396

PATIENT
  Age: 84 Year
  Sex: Male

DRUGS (2)
  1. WARFARIN [Suspect]
     Indication: PULMONARY EMBOLISM
  2. WARFARIN [Suspect]
     Indication: DEEP VEIN THROMBOSIS

REACTIONS (10)
  - Necrotising fasciitis [Recovered/Resolved]
  - Gangrene [Recovered/Resolved]
  - Anaemia [Recovered/Resolved]
  - Skin necrosis [Recovered/Resolved]
  - Extremity necrosis [Recovered/Resolved]
  - Scrotal haematoma [Recovered/Resolved]
  - Ecchymosis [Recovered/Resolved]
  - Soft tissue necrosis [Recovered/Resolved]
  - Skin lesion [Recovered/Resolved]
  - Overdose [Recovered/Resolved]
